FAERS Safety Report 8664869 (Version 2)
Quarter: 2013Q2

REPORT INFORMATION
  Report Type: Spontaneous
  Country: US (occurrence: None)
  Receive Date: 20120405
  Receipt Date: 20120628
  Transmission Date: 20140414
  Serious: Yes (Hospitalization)
  Sender: FDA-Public Use
  Company Number: PHHY2011US33864

PATIENT
  Age: 65 Year
  Sex: Female
  Weight: 51.7 kg

DRUGS (22)
  1. RECLAST [Suspect]
     Indication: OSTEOPOROSIS
     Dosage: 5 MG, ONCE, INTRAVENOUS
     Route: 042
     Dates: start: 20110418
  2. BONIVA [Concomitant]
  3. ULTRAM [Concomitant]
  4. TYLENOL (PARACETAMOL) [Concomitant]
  5. FENTANYL (FENTANYL) [Concomitant]
  6. PREMARIN [Concomitant]
  7. TEGRETOL [Concomitant]
  8. CELEBREX [Concomitant]
  9. PAREGORIC (ANISE OIL, BENZOIC ACID, CAMPHOR, ETHANOL, GLYCEROL, ILLICIUM VERUM OIL, OPIUM, PAPAVER S [Concomitant]
  10. PHAZYME (DIASTASE, PANCREATIN, PEPSIN, SIMETICONE) [Concomitant]
  11. VITAMIN B2 (RIBOFLAVIN) [Concomitant]
  12. VITAMIN C [Concomitant]
  13. LACHYDRIN (LACTIC ACID) [Concomitant]
  14. COQ10 (UBIDECARENONE) [Concomitant]
  15. MULTIVITAMINS (ASCORBIC ACID, ERGOCALCIFEROL, FOLIC ACID, NICOTINAMIDE, PANTHENOL, RETINOL, RIBOFLAVIN, THIAMINE HYDROCHLORIDE) [Concomitant]
  16. PREMARIN (ESTROGENS CONJUGATED) [Concomitant]
  17. VITAMIN D (ERGOCALCIFEROL) [Concomitant]
  18. CALCIUM (CALCIUM) [Concomitant]
  19. ZYRTEC (CETIRIZINE HYDROCHLORIDE) [Concomitant]
  20. PATADAY [Concomitant]
  21. LUNESTA (ESZOPICLONE) [Concomitant]
  22. TPN (NICOTINAMIDE, PYRIDOXINE HYDROCHLORIDE, TYROSINE) [Concomitant]

REACTIONS (5)
  - PYREXIA [None]
  - MUSCLE SPASMS [None]
  - NAUSEA [None]
  - CHILLS [None]
  - Vomiting [None]
